FAERS Safety Report 11205052 (Version 1)
Quarter: 2015Q2

REPORT INFORMATION
  Report Type: Report from Study
  Country: US (occurrence: US)
  Receive Date: 20150622
  Receipt Date: 20150622
  Transmission Date: 20150821
  Serious: No
  Sender: FDA-Public Use
  Company Number: US-009507513-1506USA008126

PATIENT
  Age: 49 Year
  Sex: Female
  Weight: 87.8 kg

DRUGS (3)
  1. CYTOXAN [Suspect]
     Active Substance: CYCLOPHOSPHAMIDE
     Dosage: UNK, QW
     Route: 048
     Dates: start: 20140513
  2. VELCADE [Suspect]
     Active Substance: BORTEZOMIB
     Indication: PLASMA CELL MYELOMA
     Dosage: UNK, QOW (DAYS 1 + 4 Q7D 1 WEEK OFF 14 DAYS)
     Route: 058
     Dates: start: 20140513
  3. DECADRON [Suspect]
     Active Substance: DEXAMETHASONE
     Dosage: UNK, QW
     Route: 048
     Dates: start: 20140513

REACTIONS (1)
  - Hypercalcaemia [Unknown]

NARRATIVE: CASE EVENT DATE: 20140513
